FAERS Safety Report 15608726 (Version 2)
Quarter: 2018Q4

REPORT INFORMATION
  Report Type: Report from Study
  Country: US (occurrence: US)
  Receive Date: 20181112
  Receipt Date: 20181210
  Transmission Date: 20190205
  Serious: No
  Sender: FDA-Public Use
  Company Number: US-SA-2018SA306738

PATIENT
  Age: 61 Year
  Sex: Female

DRUGS (2)
  1. DUPILUMAB [Suspect]
     Active Substance: DUPILUMAB
     Indication: ECZEMA
  2. DUPILUMAB [Suspect]
     Active Substance: DUPILUMAB
     Indication: DERMATITIS ATOPIC
     Dosage: 300 MG, QOW
     Route: 058
     Dates: start: 20171226

REACTIONS (2)
  - Hypersensitivity [Unknown]
  - Memory impairment [Unknown]

NARRATIVE: CASE EVENT DATE: 20181102
